FAERS Safety Report 26205600 (Version 1)
Quarter: 2025Q4

REPORT INFORMATION
  Report Type: Spontaneous
  Country: US (occurrence: US)
  Receive Date: 20251228
  Receipt Date: 20251228
  Transmission Date: 20260118
  Serious: Yes (Hospitalization, Other)
  Sender: PROCTER AND GAMBLE
  Company Number: US-PROCTER+GAMBLE-PH25022141

PATIENT
  Age: 54 Year
  Sex: Male

DRUGS (2)
  1. CALCIUM CARBONATE [Suspect]
     Active Substance: CALCIUM CARBONATE
     Dosage: EXCESSIVE CALCIUM CARBONATE INGESTION IN THE WEEK PRIOR TO ADMISSION
  2. three cans of beer [Concomitant]
     Dosage: THREE CANS OF BEER DAILY

REACTIONS (28)
  - Pancreatitis necrotising [Recovering/Resolving]
  - Acute kidney injury [Recovering/Resolving]
  - Pulmonary embolism [Recovering/Resolving]
  - Milk-alkali syndrome [Recovering/Resolving]
  - Metabolic alkalosis [Recovering/Resolving]
  - Hypercalcaemia [Recovered/Resolved]
  - Respiratory disorder [Recovering/Resolving]
  - Haemodynamic instability [Recovering/Resolving]
  - Renal impairment [Recovered/Resolved]
  - Abdominal tenderness [Recovering/Resolving]
  - Leukocytosis [Recovering/Resolving]
  - Hypokalaemia [Recovering/Resolving]
  - Hypomagnesaemia [Recovering/Resolving]
  - Metabolic acidosis [Recovering/Resolving]
  - Oliguria [Recovering/Resolving]
  - Tachypnoea [Recovering/Resolving]
  - Tachycardia [Recovering/Resolving]
  - Mental status changes [Recovering/Resolving]
  - Blood 1,25-dihydroxycholecalciferol decreased [Recovering/Resolving]
  - Blood calcium increased [Recovered/Resolved]
  - Blood creatinine increased [Recovering/Resolving]
  - Blood magnesium decreased [Recovering/Resolving]
  - Blood parathyroid hormone decreased [Recovering/Resolving]
  - Blood potassium decreased [Recovering/Resolving]
  - Calcium ionised increased [Recovering/Resolving]
  - White blood cell count increased [Recovering/Resolving]
  - Blood calcium decreased [Recovering/Resolving]
  - Product use issue [Recovering/Resolving]
